FAERS Safety Report 6526200-2 (Version None)
Quarter: 2009Q4

REPORT INFORMATION
  Report Type: 
  Country: None (occurrence: None)
  Receive Date: 20091228
  Receipt Date: 20090923
  Transmission Date: 20100525
  Serious: Yes (Other)
  Sender: FDA-Public Use
  Company Number: 54973

PATIENT
  Age: 1 Year
  Sex: Female
  Weight: 8.6183 kg

DRUGS (1)
  1. TEETHING TABLETS [Suspect]
     Indication: TEETHING
     Dosage: 4-5 TABS OVER SVRL HRS

REACTIONS (2)
  - CONVULSION [None]
  - FALL [None]
